FAERS Safety Report 17511307 (Version 1)
Quarter: 2020Q1

REPORT INFORMATION
  Report Type: Spontaneous
  Country: US (occurrence: US)
  Receive Date: 20200306
  Receipt Date: 20200306
  Transmission Date: 20200409
  Serious: Yes (Hospitalization)
  Sender: FDA-Public Use
  Company Number: US-AMWAY-2020AMY00006

PATIENT
  Sex: Male

DRUGS (2)
  1. GLISTER MULTI-ACTION FLUORIDE TOOTHPASTE [Suspect]
     Active Substance: SODIUM FLUORIDE
     Dosage: UNK
     Dates: start: 20200215, end: 20200218
  2. UNSPECIFIED HAND LOTION [Concomitant]

REACTIONS (1)
  - Throat irritation [Not Recovered/Not Resolved]

NARRATIVE: CASE EVENT DATE: 20200216
